FAERS Safety Report 7000077-3 (Version None)
Quarter: 2010Q3

REPORT INFORMATION
  Report Type: 
  Country: None (occurrence: None)
  Receive Date: 20100920
  Receipt Date: 20100909
  Transmission Date: 20110219
  Serious: Yes (Hospitalization)
  Sender: FDA-Public Use
  Company Number: CN-JNJFOC-20100900279

PATIENT
  Age: 58 Year
  Sex: Female

DRUGS (3)
  1. TYLENOL COLD [Suspect]
     Indication: PYREXIA
     Route: 048
  2. TYLENOL COLD [Suspect]
     Indication: NASOPHARYNGITIS
     Route: 048
  3. ALL OTHER THERAPEUTIC PRODUCTS [Suspect]
     Indication: BLOOD PRESSURE

REACTIONS (3)
  - ALBUMINURIA [None]
  - BLOOD URINE PRESENT [None]
  - DRUG HYPERSENSITIVITY [None]
